FAERS Safety Report 16420760 (Version 2)
Quarter: 2019Q2

REPORT INFORMATION
  Report Type: Spontaneous
  Country: AU (occurrence: AU)
  Receive Date: 20190612
  Receipt Date: 20190618
  Transmission Date: 20190711
  Serious: Yes (Hospitalization)
  Sender: FDA-Public Use
  Company Number: PHHY2019AU135582

PATIENT
  Sex: Male

DRUGS (8)
  1. MYCOPHENOLATE MOFETIL. [Suspect]
     Active Substance: MYCOPHENOLATE MOFETIL
     Indication: PRODUCT USED FOR UNKNOWN INDICATION
     Dosage: UNK
     Route: 065
  2. INFLIXIMAB [Suspect]
     Active Substance: INFLIXIMAB
     Indication: PITYRIASIS RUBRA PILARIS
     Dosage: UNK
     Route: 065
  3. NEOTIGASON [Suspect]
     Active Substance: ACITRETIN
     Indication: PRODUCT USED FOR UNKNOWN INDICATION
     Dosage: UNK
     Route: 065
  4. ACITRETIN. [Suspect]
     Active Substance: ACITRETIN
     Indication: PITYRIASIS RUBRA PILARIS
     Dosage: UNK
     Route: 065
  5. METHOTREXATE. [Suspect]
     Active Substance: METHOTREXATE
     Indication: PITYRIASIS RUBRA PILARIS
     Dosage: UNK
     Route: 065
  6. ADALIMUMAB [Suspect]
     Active Substance: ADALIMUMAB
     Indication: PITYRIASIS RUBRA PILARIS
     Dosage: UNK
     Route: 065
  7. USTEKINUMAB [Suspect]
     Active Substance: USTEKINUMAB
     Indication: PITYRIASIS RUBRA PILARIS
     Dosage: UNK
     Route: 065
  8. CICLOSPORIN [Suspect]
     Active Substance: CYCLOSPORINE
     Indication: PITYRIASIS RUBRA PILARIS
     Dosage: UNK
     Route: 065

REACTIONS (4)
  - Pityriasis rubra pilaris [Unknown]
  - Emotional distress [Unknown]
  - Dermatitis exfoliative generalised [Unknown]
  - Treatment failure [Unknown]
